FAERS Safety Report 4409339-7 (Version None)
Quarter: 2004Q3

REPORT INFORMATION
  Report Type: 
  Country: None (occurrence: None)
  Receive Date: 20040723
  Receipt Date: 20040720
  Transmission Date: 20050211
  Serious: Yes (Other)
  Sender: FDA-Public Use
  Company Number: 04-07-1035

PATIENT
  Age: 63 Year
  Sex: Female
  Weight: 71 kg

DRUGS (9)
  1. FUROSEMIDE [Suspect]
     Dosage: ORAL
  2. COREG [Suspect]
     Dosage: ORAL
     Route: 048
  3. LISINOPRIL [Suspect]
  4. DIGOXIN [Concomitant]
  5. CONJUGATED ESTROGEN [Concomitant]
  6. FLUTICASONE PROPIONATE [Concomitant]
  7. DIPHENHYDRAMINE HCL [Concomitant]
  8. ASPIRIN [Concomitant]
  9. VITAMIN E [Concomitant]

REACTIONS (15)
  - BIOPSY BONE MARROW ABNORMAL [None]
  - CARDIAC FAILURE CONGESTIVE [None]
  - CONDITION AGGRAVATED [None]
  - DRUG INEFFECTIVE [None]
  - FAMILY STRESS [None]
  - GAMMOPATHY [None]
  - INFLUENZA LIKE ILLNESS [None]
  - LEUKOPENIA [None]
  - MYELODYSPLASTIC SYNDROME [None]
  - NORMOCHROMIC NORMOCYTIC ANAEMIA [None]
  - PALPITATIONS [None]
  - PHARMACEUTICAL PRODUCT COMPLAINT [None]
  - RED BLOOD CELL SEDIMENTATION RATE INCREASED [None]
  - THROMBOCYTOPENIA [None]
  - WEIGHT DECREASED [None]
